FAERS Safety Report 11337272 (Version 1)
Quarter: 2015Q3

REPORT INFORMATION
  Report Type: Spontaneous
  Country: US (occurrence: US)
  Receive Date: 20150803
  Receipt Date: 20150803
  Transmission Date: 20151125
  Serious: Yes (Other)
  Sender: FDA-Public Use
  Company Number: US-ELI_LILLY_AND_COMPANY-US200903001325

PATIENT
  Sex: Male

DRUGS (1)
  1. ZYPREXA [Suspect]
     Active Substance: OLANZAPINE
     Indication: ABNORMAL BEHAVIOUR
     Dosage: 10 MG, UNK
     Dates: start: 1997

REACTIONS (10)
  - Syncope [Recovering/Resolving]
  - Deformity [Recovering/Resolving]
  - Rheumatoid arthritis [Recovering/Resolving]
  - Hypermetabolism [Recovering/Resolving]
  - Palpitations [Recovering/Resolving]
  - Nervousness [Recovering/Resolving]
  - Appetite disorder [Recovering/Resolving]
  - Seizure [Recovering/Resolving]
  - Amnesia [Recovering/Resolving]
  - Hallucination [Recovering/Resolving]
